FAERS Safety Report 6031645-3 (Version None)
Quarter: 2008Q4

REPORT INFORMATION
  Report Type: 
  Country: None (occurrence: None)
  Receive Date: 20081222
  Receipt Date: 20081013
  Transmission Date: 20090506
  Serious: No
  Sender: FDA-Public Use
  Company Number: US-WYE-H06383208

PATIENT
  Age: 56 Year
  Sex: Male
  Weight: 120.31 kg

DRUGS (6)
  1. PRISTIQ [Suspect]
     Indication: DEPRESSION
     Dosage: 50 MG 1X PER 1 DAY, ORAL
     Route: 048
     Dates: start: 20080901
  2. LEXAPRO [Concomitant]
  3. DEPAKOTE [Concomitant]
  4. TRAZODONE HCL [Concomitant]
  5. KLONOPIN [Concomitant]
  6. ALEVE (CAPLET) [Concomitant]

REACTIONS (2)
  - DIARRHOEA [None]
  - DRUG INEFFECTIVE [None]
